FAERS Safety Report 6919962-3 (Version None)
Quarter: 2010Q3

REPORT INFORMATION
  Report Type: 
  Country: None (occurrence: None)
  Receive Date: 20100809
  Receipt Date: 20100727
  Transmission Date: 20110219
  Serious: Yes (Hospitalization, Other)
  Sender: FDA-Public Use
  Company Number: 656533

PATIENT
  Age: 42 Year
  Sex: Female

DRUGS (6)
  1. (VINCRISTINE SULFATE) [Suspect]
     Indication: DERMATITIS EXFOLIATIVE
  2. (VINCRISTINE SULFATE) [Suspect]
     Indication: MYCOSIS FUNGOIDES
  3. DOXORUBICIN HYDROCHLORIDE [Suspect]
     Indication: MYCOSIS FUNGOIDES
  4. (BLEOMYCIN) [Suspect]
     Indication: MYCOSIS FUNGOIDES
  5. CYCLOPHOSPHAMIDE [Suspect]
     Indication: MYCOSIS FUNGOIDES
  6. PREDNISOLONE [Suspect]
     Indication: MYCOSIS FUNGOIDES

REACTIONS (18)
  - ABDOMINAL ADHESIONS [None]
  - ABDOMINAL PAIN [None]
  - AUTONOMIC NERVOUS SYSTEM IMBALANCE [None]
  - BACTERIAL INFECTION [None]
  - FUNGAL INFECTION [None]
  - HOT FLUSH [None]
  - INSOMNIA [None]
  - LEUKOCYTOSIS [None]
  - MENOPAUSE [None]
  - METASTASES TO ABDOMINAL CAVITY [None]
  - METASTASIS [None]
  - NIGHT SWEATS [None]
  - OVARIAN DISORDER [None]
  - PELVIC ABSCESS [None]
  - PYREXIA [None]
  - T-CELL LYMPHOMA RECURRENT [None]
  - VAGINAL ABSCESS [None]
  - VAGINAL DISORDER [None]
